FAERS Safety Report 6702375 (Version 23)
Quarter: 2015Q1

REPORT INFORMATION
  Report Type: Spontaneous
  Country: US (occurrence: US)
  Receive Date: 20080717
  Receipt Date: 20150116
  Transmission Date: 20150721
  Serious: Yes (Hospitalization, Other)
  Sender: FDA-Public Use
  Company Number: US-ROCHE-552214

PATIENT
  Age: 24 Year
  Sex: Female
  Weight: 72.6 kg

DRUGS (1)
  1. ACCUTANE [Suspect]
     Active Substance: ISOTRETINOIN
     Indication: ACNE CYSTIC
     Route: 065
     Dates: start: 19890303, end: 19890624

REACTIONS (21)
  - Urinary tract infection [Unknown]
  - Colitis [Unknown]
  - Crohn^s disease [Not Recovered/Not Resolved]
  - Intestinal obstruction [Unknown]
  - Anaemia [Unknown]
  - Anal fissure [Unknown]
  - Erythema nodosum [Unknown]
  - Small intestinal obstruction [Recovering/Resolving]
  - Abdominal abscess [Not Recovered/Not Resolved]
  - Anal fistula [Unknown]
  - Diarrhoea haemorrhagic [Recovering/Resolving]
  - Coeliac disease [Unknown]
  - Papillitis [Unknown]
  - Stoma site abscess [Not Recovered/Not Resolved]
  - Depression [Unknown]
  - Gastrointestinal stoma complication [Unknown]
  - Haemorrhoids [Unknown]
  - Enterocutaneous fistula [Not Recovered/Not Resolved]
  - Inflammatory bowel disease [Not Recovered/Not Resolved]
  - Large intestine polyp [Unknown]
  - Duodenal ulcer [Unknown]

NARRATIVE: CASE EVENT DATE: 198905
